FAERS Safety Report 7504840-1 (Version None)
Quarter: 2011Q2

REPORT INFORMATION
  Report Type: 
  Country: None (occurrence: None)
  Receive Date: 20110525
  Receipt Date: 20110310
  Transmission Date: 20111010
  Serious: Yes (Other)
  Sender: FDA-Public Use
  Company Number: US-BAYER-201015491NA

PATIENT
  Weight: 77.098 kg

DRUGS (64)
  1. GADOLINIUM IN UNSPECIFIED DRUG [Suspect]
     Dosage: UNK
     Dates: start: 20001019, end: 20001019
  2. GADOLINIUM IN UNSPECIFIED DRUG [Suspect]
     Dosage: UNK
     Dates: start: 20040521, end: 20040521
  3. GADOLINIUM IN UNSPECIFIED DRUG [Suspect]
     Dosage: UNK
     Dates: start: 20041121, end: 20041121
  4. GADOLINIUM IN UNSPECIFIED DRUG [Suspect]
     Dosage: UNK
     Dates: start: 20070624, end: 20070624
  5. OPTIMARK [Suspect]
     Indication: NUCLEAR MAGNETIC RESONANCE IMAGING
  6. PROHANCE [Suspect]
     Indication: NUCLEAR MAGNETIC RESONANCE IMAGING
  7. STEROIDS NOS [Concomitant]
  8. LISINOPRIL [Concomitant]
  9. REGLAN [Concomitant]
  10. OMNIPAQUE 140 [Concomitant]
     Dosage: UNK
     Dates: start: 20080930, end: 20080930
  11. MAGNEVIST [Suspect]
     Indication: NUCLEAR MAGNETIC RESONANCE IMAGING
     Dosage: 17 ML, ONCE
     Dates: start: 20070807, end: 20070807
  12. GADOLINIUM IN UNSPECIFIED DRUG [Suspect]
     Dosage: UNK
     Dates: start: 20020330, end: 20020330
  13. OMNISCAN [Suspect]
     Indication: NUCLEAR MAGNETIC RESONANCE IMAGING BRAIN
     Dosage: 20 ML, ONCE
     Dates: start: 20090903, end: 20090903
  14. MULTIHANCE [Suspect]
     Indication: NUCLEAR MAGNETIC RESONANCE IMAGING
  15. QUETIAPINE [Concomitant]
  16. SERTRALINE HYDROCHLORIDE [Concomitant]
  17. ZOLPIDEM [Concomitant]
  18. ZEMPLAR [Concomitant]
  19. OMNIPAQUE 140 [Concomitant]
     Indication: FISTULOGRAM
     Dosage: 117 ML, UNK
     Dates: start: 20071203, end: 20071203
  20. ISOVUE-128 [Concomitant]
     Indication: COMPUTERISED TOMOGRAM HEAD
     Dosage: 100 ML, UNK
     Dates: start: 20050804, end: 20050804
  21. ISOVUE-128 [Concomitant]
     Dosage: 100 ML, UNK
     Dates: start: 20060806, end: 20060806
  22. ISOVUE-128 [Concomitant]
     Dosage: 100 ML, UNK
     Dates: start: 20070628, end: 20070628
  23. ISOVUE-128 [Concomitant]
     Dosage: 100 ML, UNK
     Dates: start: 20070924, end: 20070924
  24. ISOVUE-128 [Concomitant]
     Dosage: 100 ML, UNK
     Dates: start: 20071016, end: 20071016
  25. ANTIINFLAMMATORY/ANTIRHEUMATIC PRODUCTS [Concomitant]
  26. IMMUNOSUPPRESSIVE AGENTS [Concomitant]
  27. AMLODIPINE [Concomitant]
  28. NEURONTIN [Concomitant]
  29. PREDNISONE [Concomitant]
  30. EPOGEN [Concomitant]
  31. OMNIPAQUE 140 [Concomitant]
     Indication: VENOGRAM
     Dosage: 100 ML, UNK
     Dates: start: 20001011, end: 20001011
  32. OMNIPAQUE 140 [Concomitant]
     Indication: COMPUTERISED TOMOGRAM
     Dosage: 125 ML, UNK
     Dates: start: 20001023, end: 20001023
  33. GADOLINIUM IN UNSPECIFIED DRUG [Suspect]
     Dosage: UNK
     Dates: start: 20000908, end: 20000908
  34. IRON SUPPLEMENT [Concomitant]
  35. NORVASC [Concomitant]
  36. ISOVUE-128 [Concomitant]
     Indication: COMPUTERISED TOMOGRAM
     Dosage: 120 ML, UNK
     Dates: start: 20020114, end: 20020114
  37. ISOVUE-128 [Concomitant]
     Dosage: 97 ML, UNK
     Dates: start: 20020217, end: 20020217
  38. ISOVUE-128 [Concomitant]
     Dosage: 100 ML, UNK
     Dates: start: 20071025, end: 20071025
  39. OMNISCAN [Suspect]
     Indication: NUCLEAR MAGNETIC RESONANCE IMAGING
     Dosage: 15 ML, ONCE
     Route: 042
     Dates: start: 20050811, end: 20050811
  40. VITAMINS NOS [Concomitant]
  41. ANTITHROMBOTIC AGENTS [Concomitant]
  42. DARBEPOETIN ALFA [Concomitant]
  43. PLAVIX [Concomitant]
  44. FERRLECIT [Concomitant]
  45. RENAGEL [Concomitant]
  46. METHOTREXATE [Concomitant]
  47. OMNIPAQUE 140 [Concomitant]
     Dosage: 100 ML, UNK
     Dates: start: 20090602, end: 20090602
  48. ISOVUE-128 [Concomitant]
     Indication: ANGIOGRAM
     Dosage: 100 ML, UNK
     Dates: start: 20060519, end: 20060519
  49. MAGNEVIST [Suspect]
  50. BLOOD PRESSURE MEDICATION (NOS) [Concomitant]
  51. FOLIC ACID [Concomitant]
  52. TOPROL-XL [Concomitant]
  53. OMNIPAQUE 140 [Concomitant]
     Indication: ANGIOGRAM
     Dosage: 10 ML, UNK
     Dates: start: 20000908, end: 20000908
  54. OMNIPAQUE 140 [Concomitant]
     Dosage: 100 ML, UNK
     Dates: start: 20060111, end: 20060111
  55. ISOVUE-128 [Concomitant]
     Dosage: 140 ML, UNK
     Dates: start: 20070209, end: 20070209
  56. ISOVUE-128 [Concomitant]
     Dosage: 100 ML, UNK
     Dates: start: 20070709, end: 20070709
  57. GADOLINIUM IN UNSPECIFIED DRUG [Suspect]
     Dosage: UNK
     Dates: start: 20071218, end: 20071218
  58. GADOLINIUM IN UNSPECIFIED DRUG [Suspect]
     Dosage: UNK
     Dates: start: 20080813, end: 20080813
  59. ANTIBIOTICS [Concomitant]
  60. NEPHROCAPS [Concomitant]
  61. DILANTIN [Concomitant]
  62. PREVACID [Concomitant]
  63. PARICALCITOL [Concomitant]
  64. PHOSLO [Concomitant]

REACTIONS (26)
  - NEPHROGENIC SYSTEMIC FIBROSIS [None]
  - MOBILITY DECREASED [None]
  - SKIN WARM [None]
  - SKIN HYPERPIGMENTATION [None]
  - JOINT SWELLING [None]
  - RENAL INJURY [None]
  - SKIN TIGHTNESS [None]
  - DRY SKIN [None]
  - SKIN HYPERTROPHY [None]
  - ARTHRALGIA [None]
  - PAIN OF SKIN [None]
  - JOINT RANGE OF MOTION DECREASED [None]
  - SKIN EXFOLIATION [None]
  - SKIN FIBROSIS [None]
  - PAIN [None]
  - SCAR [None]
  - SKIN INDURATION [None]
  - PAIN IN EXTREMITY [None]
  - JOINT STIFFNESS [None]
  - OEDEMA PERIPHERAL [None]
  - GENERAL PHYSICAL HEALTH DETERIORATION [None]
  - BONE PAIN [None]
  - ERYTHEMA [None]
  - FIBROSIS [None]
  - DEFORMITY [None]
  - DISCOMFORT [None]
